FAERS Safety Report 12322126 (Version 5)
Quarter: 2016Q4

REPORT INFORMATION
  Report Type: Report from Study
  Country: US (occurrence: US)
  Receive Date: 20160502
  Receipt Date: 20161221
  Transmission Date: 20170207
  Serious: Yes (Hospitalization, Other)
  Sender: FDA-Public Use
  Company Number: US-APOPHARMA-2016AP007941

PATIENT
  Age: 19 Year
  Sex: Female
  Weight: 95 kg

DRUGS (10)
  1. DEFERIPRONE [Suspect]
     Active Substance: DEFERIPRONE
     Dosage: 20 MG/KG, TID
     Route: 048
     Dates: start: 20151208, end: 20151222
  2. DEFERIPRONE [Suspect]
     Active Substance: DEFERIPRONE
     Dosage: 33 MG/KG, TID
     Route: 048
     Dates: start: 20160504
  3. DEFERIPRONE [Suspect]
     Active Substance: DEFERIPRONE
     Dosage: 33 MG/KG, TID
     Route: 048
     Dates: start: 20160311, end: 20160414
  4. DEFERIPRONE [Suspect]
     Active Substance: DEFERIPRONE
     Indication: SICKLE CELL ANAEMIA
     Dosage: 15 MG/KG, TID
     Route: 048
     Dates: start: 20151030, end: 20151105
  5. DEFERIPRONE [Suspect]
     Active Substance: DEFERIPRONE
     Indication: HAEMOSIDEROSIS
     Dosage: 20 MG/KG, TID
     Route: 048
     Dates: start: 20151106, end: 20151119
  6. DEFERIPRONE [Suspect]
     Active Substance: DEFERIPRONE
     Dosage: 33 MG/KG, TID
     Route: 048
     Dates: start: 20151223, end: 20160302
  7. DEPO-PROVERA [Concomitant]
     Active Substance: MEDROXYPROGESTERONE ACETATE
     Indication: CONTRACEPTION
     Dosage: UNK, OTHER
     Route: 030
     Dates: start: 20160311
  8. IMITREX [Concomitant]
     Active Substance: SUMATRIPTAN SUCCINATE
     Indication: MIGRAINE
     Dosage: 50 MG, SINGLE
     Route: 048
     Dates: start: 20160415, end: 20160415
  9. NORCO [Concomitant]
     Active Substance: ACETAMINOPHEN\HYDROCODONE BITARTRATE
     Indication: PAIN
     Dosage: 7.5 MG, SINGLE
     Route: 048
     Dates: start: 20160415, end: 20160415
  10. IBUPROFEN. [Concomitant]
     Active Substance: IBUPROFEN
     Indication: PYREXIA
     Dosage: 600 MG, SINGLE
     Route: 048
     Dates: start: 20160415, end: 20160415

REACTIONS (5)
  - Migraine [Recovered/Resolved]
  - Propionibacterium infection [Recovered/Resolved]
  - Device related infection [Recovered/Resolved]
  - Sickle cell anaemia with crisis [Recovered/Resolved]
  - Sinusitis bacterial [Recovered/Resolved]

NARRATIVE: CASE EVENT DATE: 20160415
